FAERS Safety Report 6546058-5 (Version None)
Quarter: 2010Q1

REPORT INFORMATION
  Report Type: 
  Country: None (occurrence: None)
  Receive Date: 20100119
  Receipt Date: 20100104
  Transmission Date: 20100710
  Serious: Yes (Hospitalization)
  Sender: FDA-Public Use
  Company Number: 2009AC000280

PATIENT
  Age: 54 Year
  Sex: Male

DRUGS (11)
  1. DIGOXIN [Suspect]
     Dosage: 0.125 MG; QD; PO
     Route: 048
     Dates: start: 20061201
  2. AMIODARONE HCL [Concomitant]
  3. ATENOLOL [Concomitant]
  4. CLONIDINE [Concomitant]
  5. LASIX [Concomitant]
  6. LISINOPRIL [Concomitant]
  7. POTASSIUM CHLORIDE [Concomitant]
  8. SYNTHROID [Concomitant]
  9. POTASSIUM CHLORIDE [Concomitant]
  10. FUROSEMIDE [Concomitant]
  11. FERROUS SULFATE TAB [Concomitant]

REACTIONS (27)
  - ABDOMINAL PAIN [None]
  - ALCOHOL ABUSE [None]
  - BLOOD CALCIUM INCREASED [None]
  - BRADYCARDIA [None]
  - CARDIAC FAILURE CONGESTIVE [None]
  - CARDIOMEGALY [None]
  - CEREBROVASCULAR ACCIDENT [None]
  - CHILLS [None]
  - CONGESTIVE CARDIOMYOPATHY [None]
  - CORONARY ARTERY DISEASE [None]
  - COUGH [None]
  - DIVERTICULUM INTESTINAL [None]
  - DYSARTHRIA [None]
  - ECONOMIC PROBLEM [None]
  - HAEMORRHOIDS [None]
  - HYPOTHYROIDISM [None]
  - MALAISE [None]
  - MALIGNANT HYPERTENSION [None]
  - MULTIPLE INJURIES [None]
  - NON-CARDIAC CHEST PAIN [None]
  - OEDEMA PERIPHERAL [None]
  - PYREXIA [None]
  - RENAL FAILURE ACUTE [None]
  - SINUS ARRHYTHMIA [None]
  - SURGERY [None]
  - SYNCOPE [None]
  - TOBACCO ABUSE [None]
